FAERS Safety Report 15262328 (Version 1)
Quarter: 2018Q3

REPORT INFORMATION
  Report Type: Spontaneous
  Country: HR (occurrence: HR)
  Receive Date: 20180809
  Receipt Date: 20180809
  Transmission Date: 20181010
  Serious: Yes (Hospitalization)
  Sender: FDA-Public Use
  Company Number: PHHY2018HR068489

PATIENT
  Age: 74 Year
  Sex: Male
  Weight: 135 kg

DRUGS (3)
  1. PIRAMIL [Suspect]
     Active Substance: RAMIPRIL
     Indication: HYPERTENSION
     Dosage: 5 MG, QD (1X1)
     Route: 048
     Dates: start: 20081222, end: 20180601
  2. DICLAC DUO [Suspect]
     Active Substance: DICLOFENAC SODIUM
     Indication: PRODUCT USED FOR UNKNOWN INDICATION
     Dosage: 75 MG, (1X1 PP)
     Route: 048
     Dates: start: 20180403, end: 20180601
  3. DETRALEX [Suspect]
     Active Substance: DIOSMIN\HESPERIDIN
     Indication: PERIPHERAL VENOUS DISEASE
     Dosage: 2 ?G/L, QD
     Route: 048
     Dates: start: 20150429, end: 20180601

REACTIONS (1)
  - Angioedema [Recovered/Resolved]

NARRATIVE: CASE EVENT DATE: 20180529
